FAERS Safety Report 14595133 (Version 1)
Quarter: 2018Q1

REPORT INFORMATION
  Report Type: Spontaneous
  Country: US (occurrence: US)
  Receive Date: 20180302
  Receipt Date: 20180302
  Transmission Date: 20180509
  Serious: No
  Sender: FDA-Public Use
  Company Number: US-AKORN PHARMACEUTICALS-2017AKN00209

PATIENT
  Sex: Male
  Weight: 90.7 kg

DRUGS (2)
  1. MYORISAN [Suspect]
     Active Substance: ISOTRETINOIN
     Indication: ACNE
     Dosage: 20 MG, 3X/DAY
     Route: 048
     Dates: start: 201611, end: 20170112
  2. MYORISAN [Suspect]
     Active Substance: ISOTRETINOIN
     Dosage: UNK UNK
     Route: 048
     Dates: start: 20170216

REACTIONS (1)
  - Blood cholesterol increased [Recovered/Resolved]

NARRATIVE: CASE EVENT DATE: 20170112
